FAERS Safety Report 15890244 (Version 2)
Quarter: 2019Q1

REPORT INFORMATION
  Report Type: Report from Study
  Country: None (occurrence: US)
  Receive Date: 20190130
  Receipt Date: 20190226
  Transmission Date: 20190417
  Serious: Yes (Hospitalization, Other)
  Sender: FDA-Public Use
  Company Number: US-ABBVIE-18K-163-2567172-00

PATIENT
  Sex: Male

DRUGS (3)
  1. HUMIRA [Suspect]
     Active Substance: ADALIMUMAB
     Indication: COLITIS ULCERATIVE
     Dosage: DAY 1
     Route: 058
     Dates: start: 20181107, end: 20181107
  2. HUMIRA [Suspect]
     Active Substance: ADALIMUMAB
     Dosage: DAY 15
     Route: 058
     Dates: start: 20181121, end: 20181121
  3. HUMIRA [Suspect]
     Active Substance: ADALIMUMAB
     Route: 058
     Dates: start: 20181205

REACTIONS (25)
  - Fatigue [Recovered/Resolved]
  - Haematochezia [Not Recovered/Not Resolved]
  - Depressed mood [Not Recovered/Not Resolved]
  - Mucous stools [Not Recovered/Not Resolved]
  - Post procedural fever [Unknown]
  - Knee arthroplasty [Unknown]
  - Weight decreased [Not Recovered/Not Resolved]
  - Malaise [Not Recovered/Not Resolved]
  - Fatigue [Unknown]
  - Diarrhoea [Not Recovered/Not Resolved]
  - Vomiting [Not Recovered/Not Resolved]
  - Rectal haemorrhage [Not Recovered/Not Resolved]
  - Pulmonary oedema [Recovered/Resolved]
  - Anxiety [Not Recovered/Not Resolved]
  - Dyspnoea [Unknown]
  - Fear [Not Recovered/Not Resolved]
  - Cough [Recovered/Resolved]
  - Abdominal pain upper [Not Recovered/Not Resolved]
  - Constipation [Not Recovered/Not Resolved]
  - Frequent bowel movements [Recovering/Resolving]
  - Decreased appetite [Not Recovered/Not Resolved]
  - Loss of personal independence in daily activities [Not Recovered/Not Resolved]
  - Insomnia [Not Recovered/Not Resolved]
  - Nausea [Recovered/Resolved]
  - Headache [Recovered/Resolved]

NARRATIVE: CASE EVENT DATE: 2018
